FAERS Safety Report 6215673-0 (Version None)
Quarter: 2009Q2

REPORT INFORMATION
  Report Type: 
  Country: None (occurrence: None)
  Receive Date: 20090603
  Receipt Date: 20090603
  Transmission Date: 20091009
  Serious: Yes (Hospitalization, Disabling)
  Sender: FDA-Public Use
  Company Number: None

PATIENT
  Age: 73 Year
  Sex: Male
  Weight: 97.977 kg

DRUGS (2)
  1. ACTOS [Suspect]
     Dosage: NO RECORDS CK HOSP 3 DAYS IN HOSPITAL
  2. 10 UNITS INSULIN PER MEAL [Suspect]

REACTIONS (4)
  - GAIT DISTURBANCE [None]
  - IMPAIRED DRIVING ABILITY [None]
  - OEDEMA PERIPHERAL [None]
  - THROMBOSIS [None]
